FAERS Safety Report 17729078 (Version 1)
Quarter: 2020Q2

REPORT INFORMATION
  Report Type: Spontaneous
  Country: US (occurrence: US)
  Receive Date: 20200430
  Receipt Date: 20200430
  Transmission Date: 20200714
  Serious: No
  Sender: FDA-Public Use
  Company Number: US-SA-2020SA112651

PATIENT
  Sex: Female

DRUGS (3)
  1. MISOPROSTOL. [Concomitant]
     Active Substance: MISOPROSTOL
     Dosage: 1 DF
     Dates: start: 20200424
  2. MIFEPRISTONE [Concomitant]
     Active Substance: MIFEPRISTONE
     Dosage: 1 DF
     Dates: start: 20200423
  3. DUPIXENT [Suspect]
     Active Substance: DUPILUMAB
     Dosage: UNK

REACTIONS (1)
  - Exposure during pregnancy [Unknown]
